FAERS Safety Report 7352705-0 (Version None)
Quarter: 2011Q1

REPORT INFORMATION
  Report Type: 
  Country: None (occurrence: None)
  Receive Date: 20110302
  Receipt Date: 20101118
  Transmission Date: 20110831
  Serious: Yes (Other)
  Sender: FDA-Public Use
  Company Number: 318684

PATIENT
  Age: 76 Year
  Sex: Male
  Weight: 95.2 kg

DRUGS (2)
  1. METFORMIN (METFORMIN) [Concomitant]
  2. NOVOLIN 70/30 [Suspect]
     Indication: TYPE 2 DIABETES MELLITUS
     Dosage: SUBCUTANEOUS
     Route: 058

REACTIONS (2)
  - MALAISE [None]
  - BLOOD GLUCOSE DECREASED [None]
